FAERS Safety Report 6420605-6 (Version None)
Quarter: 2009Q4

REPORT INFORMATION
  Report Type: 
  Country: None (occurrence: None)
  Receive Date: 20091027
  Receipt Date: 20091012
  Transmission Date: 20100525
  Serious: Yes (Disabling, Other)
  Sender: FDA-Public Use
  Company Number: LMI-2009-00282

PATIENT
  Age: 65 Year
  Sex: Male
  Weight: 81.6475 kg

DRUGS (7)
  1. CARDIOLITE [Suspect]
     Indication: CARDIAC VALVE DISEASE
     Dosage: INTRAVENOUS
     Route: 042
     Dates: start: 20090907, end: 20090907
  2. CARDIOLITE [Suspect]
     Indication: EXERCISE TEST
     Dosage: INTRAVENOUS
     Route: 042
     Dates: start: 20090907, end: 20090907
  3. CARDIOLITE [Suspect]
     Indication: FAMILIAL RISK FACTOR
     Dosage: INTRAVENOUS
     Route: 042
     Dates: start: 20090907, end: 20090907
  4. VITAMIN C (ASCORBIC ACID) (TABLETS) [Concomitant]
  5. B COMPLEX (PYRIDOXINE HYDROCHLORIDE, THIAMINE HYDROCHLORIDE, RIBOFLAVI [Concomitant]
  6. SUPER B COMPLEX (ASCORBIC ACID, PYRIDOXINE HYDROCHLORIDE, BIOTIN, FOLI [Concomitant]
  7. FISH OIL (FISH OIL) [Concomitant]

REACTIONS (4)
  - ARTHRALGIA [None]
  - IMPAIRED WORK ABILITY [None]
  - JOINT STIFFNESS [None]
  - MOBILITY DECREASED [None]
